FAERS Safety Report 14119714 (Version 1)
Quarter: 2017Q4

REPORT INFORMATION
  Report Type: Spontaneous
  Country: US (occurrence: US)
  Receive Date: 20171024
  Receipt Date: 20171024
  Transmission Date: 20180321
  Serious: Yes (Other)
  Sender: FDA-Public Use
  Company Number: None

PATIENT
  Age: 62 Year
  Sex: Male
  Weight: 92.25 kg

DRUGS (1)
  1. HUMIRA [Suspect]
     Active Substance: ADALIMUMAB
     Indication: CROHN^S DISEASE
     Dosage: QUANTITY:2 INJECTION;OTHER FREQUENCY:2 X MONTH;?
     Route: 030
     Dates: start: 20170515

REACTIONS (4)
  - Back pain [None]
  - Musculoskeletal pain [None]
  - Drug effect decreased [None]
  - Chest pain [None]

NARRATIVE: CASE EVENT DATE: 20170515
